FAERS Safety Report 9922877 (Version 1)
Quarter: 2014Q1

REPORT INFORMATION
  Report Type: Spontaneous
  Country: JP (occurrence: JP)
  Receive Date: 20140225
  Receipt Date: 20140225
  Transmission Date: 20141002
  Serious: Yes (Other)
  Sender: FDA-Public Use
  Company Number: JP-WATSON-2013-03850

PATIENT
  Age: 75 Year
  Sex: Male

DRUGS (1)
  1. PREDNISOLONE (UNKNOWN) [Suspect]
     Indication: LYMPHOMA
     Dosage: 100 MG, DAILY
     Route: 042

REACTIONS (2)
  - Catatonia [None]
  - Delirium [None]
